FAERS Safety Report 25476263 (Version 1)
Quarter: 2025Q2

REPORT INFORMATION
  Report Type: Spontaneous
  Country: US (occurrence: US)
  Receive Date: 20250625
  Receipt Date: 20250625
  Transmission Date: 20250716
  Serious: No
  Sender: UPSHER SMITH LABORATORIES
  Company Number: US-UPSHER-SMITH LABORATORIES, LLC-20250100334

PATIENT
  Age: 74 Year
  Sex: Male

DRUGS (1)
  1. TESTOSTERONE [Suspect]
     Active Substance: TESTOSTERONE
     Indication: Product used for unknown indication
     Route: 065

REACTIONS (5)
  - Pruritus [Unknown]
  - Chills [Unknown]
  - Product quality issue [Unknown]
  - Erythema [Recovering/Resolving]
  - Application site urticaria [Unknown]
